FAERS Safety Report 4828120-8 (Version None)
Quarter: 2005Q4

REPORT INFORMATION
  Report Type: 
  Country: None (occurrence: None)
  Receive Date: 20051110
  Receipt Date: 20051102
  Transmission Date: 20060501
  Serious: Yes (Other)
  Sender: FDA-Public Use
  Company Number: 2005149725

PATIENT
  Age: 88 Year
  Sex: Male
  Weight: 56.246 kg

DRUGS (4)
  1. FRESHBURST LISTERINE (MENTHOL, METHYL SALICYLATE, EUCALYPTOL, THYMOL) [Suspect]
     Dosage: ORAL
     Route: 048
     Dates: start: 20051001
  2. MEMANTINE HYDROCHLORIDE (MEMANTINE HYDROCHLORIDE) [Concomitant]
  3. TOLTERODINE TARTRATE [Concomitant]
  4. LOTRISONE [Concomitant]

REACTIONS (3)
  - HALLUCINATION [None]
  - HICCUPS [None]
  - WRONG TECHNIQUE IN DRUG USAGE PROCESS [None]
